FAERS Safety Report 5235747-0 (Version None)
Quarter: 2007Q1

REPORT INFORMATION
  Report Type: 
  Country: None (occurrence: None)
  Receive Date: 20070212
  Receipt Date: 20070202
  Transmission Date: 20070707
  Serious: Yes (Life-Threatening)
  Sender: FDA-Public Use
  Company Number: HQWYE394102FEB07

PATIENT
  Sex: Male
  Weight: 59 kg

DRUGS (5)
  1. TAZOCIN [Suspect]
     Indication: PNEUMONIA ASPIRATION
     Route: 041
     Dates: start: 20061228, end: 20061229
  2. SOLITA T [Concomitant]
     Dosage: UNKNOWN DOSE AND FREQUENCY
     Route: 041
  3. VITAMEDIN INTRAVENOUS [Concomitant]
     Dosage: UNKNOWN DOSE AND FREQUENCY
     Route: 041
  4. GASTER [Concomitant]
     Indication: GASTRITIS
     Route: 041
     Dates: start: 20061228, end: 20061229
  5. GASTER [Concomitant]
     Indication: PROPHYLAXIS

REACTIONS (4)
  - CHILLS [None]
  - DEPRESSED LEVEL OF CONSCIOUSNESS [None]
  - DISSEMINATED INTRAVASCULAR COAGULATION [None]
  - PYREXIA [None]
